FAERS Safety Report 4840450-2 (Version None)
Quarter: 2005Q4

REPORT INFORMATION
  Report Type: 
  Country: None (occurrence: None)
  Receive Date: 20051129
  Receipt Date: 20051129
  Transmission Date: 20060501
  Serious: Yes (Hospitalization)
  Sender: FDA-Public Use
  Company Number: None

PATIENT
  Sex: Male
  Weight: 79.3795 kg

DRUGS (1)
  1. SEROSTIM [Suspect]
     Indication: LIPODYSTROPHY ACQUIRED
     Dosage: 6MG  QD  SQ
     Route: 058
     Dates: start: 20051018, end: 20051101

REACTIONS (4)
  - DEHYDRATION [None]
  - HYPERPHAGIA [None]
  - POLYDIPSIA [None]
  - POLYURIA [None]
